FAERS Safety Report 12456569 (Version 2)
Quarter: 2016Q3

REPORT INFORMATION
  Report Type: Spontaneous
  Country: ES (occurrence: ES)
  Receive Date: 20160610
  Receipt Date: 20160712
  Transmission Date: 20161109
  Serious: Yes (Hospitalization)
  Sender: FDA-Public Use
  Company Number: ES-ELI_LILLY_AND_COMPANY-ES201605011078

PATIENT
  Sex: Female

DRUGS (4)
  1. EUTIROX [Concomitant]
     Active Substance: LEVOTHYROXINE SODIUM
     Dosage: 75 MG, QD SAT - SUN
  2. OLANZAPINE. [Suspect]
     Active Substance: OLANZAPINE
     Dosage: 210 MG, MONTHLY (1/M)
     Route: 030
  3. OLANZAPINE. [Suspect]
     Active Substance: OLANZAPINE
     Indication: BIPOLAR DISORDER
     Dosage: 305 MG, EVERY 21 DAYS
     Route: 030
  4. EUTIROX [Concomitant]
     Active Substance: LEVOTHYROXINE SODIUM
     Indication: HYPOTHYROIDISM
     Dosage: 50 MG, QD MOM-FRI

REACTIONS (14)
  - Dysarthria [Unknown]
  - Bacterial test positive [Unknown]
  - Vomiting [Unknown]
  - Anxiety [Unknown]
  - Blood glucose increased [Unknown]
  - Haemoglobin urine present [Unknown]
  - Dizziness [Unknown]
  - Consciousness fluctuating [Unknown]
  - Blood urea increased [Unknown]
  - Somnolence [Unknown]
  - Agitation [Unknown]
  - Blood lactate dehydrogenase increased [Unknown]
  - Logorrhoea [Unknown]
  - Sedation [Unknown]

NARRATIVE: CASE EVENT DATE: 20160425
